FAERS Safety Report 16628213 (Version 2)
Quarter: 2019Q3

REPORT INFORMATION
  Report Type: Spontaneous
  Country: US (occurrence: US)
  Receive Date: 20190724
  Receipt Date: 20190807
  Transmission Date: 20191004
  Serious: No
  Sender: FDA-Public Use
  Company Number: US-009507513-1907USA012121

PATIENT
  Age: 39 Year
  Sex: Female

DRUGS (12)
  1. PROVENTIL [Suspect]
     Active Substance: ALBUTEROL
     Dosage: DOSE: 2 INHALATIONS, FREQUENCY: EVERY 4 TO 6 HOURS AS NEEDED, ROUTE OF ADMINISTRATION: INHALER
     Route: 055
     Dates: start: 201907
  2. VOSPIRE [Concomitant]
     Dosage: TABLETS WHEN NEEDED
     Route: 048
  3. PROVENTIL [Suspect]
     Active Substance: ALBUTEROL
     Dosage: UNK
  4. PROVENTIL [Suspect]
     Active Substance: ALBUTEROL
     Dosage: UNK
  5. PROVENTIL [Suspect]
     Active Substance: ALBUTEROL
     Dosage: UNK
  6. PROVENTIL [Suspect]
     Active Substance: ALBUTEROL
     Dosage: UNK
  7. PROVENTIL [Suspect]
     Active Substance: ALBUTEROL
     Indication: ASTHMA
     Dosage: DOSE: 2 INHALATIONS, FREQUENCY: EVERY 4 TO 6 HOURS AS NEEDED, ROUTE OF ADMINISTRATION: INHALER
     Route: 055
     Dates: start: 1995
  8. PROVENTIL [Suspect]
     Active Substance: ALBUTEROL
     Dosage: UNK
  9. PROVENTIL [Suspect]
     Active Substance: ALBUTEROL
     Dosage: UNK
  10. PROVENTIL [Suspect]
     Active Substance: ALBUTEROL
     Dosage: UNK
  11. PROVENTIL [Suspect]
     Active Substance: ALBUTEROL
     Dosage: UNK
  12. PROVENTIL [Suspect]
     Active Substance: ALBUTEROL
     Dosage: UNK

REACTIONS (8)
  - Product quality issue [Unknown]
  - Poor quality device used [Unknown]
  - Dyspnoea [Recovered/Resolved]
  - Chest discomfort [Recovered/Resolved]
  - Product quality issue [Recovered/Resolved]
  - Incorrect dose administered by device [Unknown]
  - Poor quality device used [Unknown]
  - Incorrect dose administered by device [Unknown]

NARRATIVE: CASE EVENT DATE: 201907
